FAERS Safety Report 9096042 (Version 1)
Quarter: 2013Q1

REPORT INFORMATION
  Report Type: Spontaneous
  Country: FR (occurrence: FR)
  Receive Date: 20130207
  Receipt Date: 20130207
  Transmission Date: 20140127
  Serious: Yes (Other)
  Sender: FDA-Public Use
  Company Number: FR-JNJFOC-20130200171

PATIENT
  Age: 46 Year
  Sex: Female

DRUGS (4)
  1. PREZISTA [Suspect]
     Indication: PRODUCT USED FOR UNKNOWN INDICATION
     Route: 048
     Dates: start: 201205
  2. RITONAVIR [Concomitant]
     Route: 065
  3. TRUVADA [Concomitant]
     Route: 065
  4. CELSENTRI [Concomitant]
     Route: 065

REACTIONS (1)
  - Nephrolithiasis [Not Recovered/Not Resolved]
